FAERS Safety Report 4615365-5 (Version None)
Quarter: 2005Q1

REPORT INFORMATION
  Report Type: 
  Country: None (occurrence: None)
  Receive Date: 20050317
  Receipt Date: 20050315
  Transmission Date: 20050727
  Serious: Yes (Death, Hospitalization)
  Sender: FDA-Public Use
  Company Number: 211701

PATIENT
  Age: 58 Year
  Sex: Male
  Weight: 85 kg

DRUGS (3)
  1. MABTHERA (RITUXIMAB) CONC FOR SOLUTION FOR INFUSION [Suspect]
     Dosage: 750 MG, INTRAVENOUS
     Route: 042
     Dates: start: 20040709
  2. CYCLOPHOSPHAMIDE [Suspect]
     Dosage: 1200 MG, INTRAVENOUS
     Route: 042
     Dates: start: 20040709
  3. VINCRISTINE [Suspect]
     Dosage: 2 MG, INTRAVENOUS
     Route: 042
     Dates: start: 20040709

REACTIONS (1)
  - DYSPNOEA [None]
